FAERS Safety Report 8949952 (Version 2)
Quarter: 2013Q1

REPORT INFORMATION
  Report Type: Spontaneous
  Country: US (occurrence: US)
  Receive Date: 20121205
  Receipt Date: 20130128
  Transmission Date: 20140127
  Serious: Yes (Hospitalization)
  Sender: FDA-Public Use
  Company Number: US-GILEAD-2012-0065710

PATIENT
  Sex: Female

DRUGS (3)
  1. LETAIRIS [Suspect]
     Indication: PULMONARY ARTERIAL HYPERTENSION
     Dosage: 5 MG, QD
     Route: 048
     Dates: start: 20120323
  2. REMODULIN [Concomitant]
  3. ADCIRCA [Concomitant]

REACTIONS (3)
  - Renal failure [Unknown]
  - Pulmonary arterial hypertension [Unknown]
  - Pyrexia [Unknown]
